FAERS Safety Report 13028661 (Version 19)
Quarter: 2020Q2

REPORT INFORMATION
  Report Type: Spontaneous
  Country: US (occurrence: US)
  Receive Date: 20161214
  Receipt Date: 20200506
  Transmission Date: 20200713
  Serious: Yes (Hospitalization, Other)
  Sender: FDA-Public Use
  Company Number: US-INCYTE CORPORATION-2016IN007901

PATIENT

DRUGS (29)
  1. JAKAFI [Interacting]
     Active Substance: RUXOLITINIB
     Dosage: 20 MG, BID
     Route: 048
  2. SPIRONOLACTONE. [Concomitant]
     Active Substance: SPIRONOLACTONE
     Indication: PRODUCT USED FOR UNKNOWN INDICATION
     Dosage: UNK
     Route: 065
  3. VITAMIN C [Concomitant]
     Active Substance: ASCORBIC ACID
     Indication: PRODUCT USED FOR UNKNOWN INDICATION
     Dosage: UNK
     Route: 065
  4. JAKAFI [Interacting]
     Active Substance: RUXOLITINIB
     Dosage: 10 MG, UNK
     Route: 048
  5. JAKAFI [Interacting]
     Active Substance: RUXOLITINIB
     Dosage: 20 MG, BID
     Route: 048
  6. XIFAXAN [Concomitant]
     Active Substance: RIFAXIMIN
     Indication: PRODUCT USED FOR UNKNOWN INDICATION
     Dosage: 550 MG, BID
     Route: 065
  7. PROZAC [Concomitant]
     Active Substance: FLUOXETINE HYDROCHLORIDE
     Indication: PRODUCT USED FOR UNKNOWN INDICATION
     Dosage: 40 MG, QD
     Route: 065
  8. LASIX [Concomitant]
     Active Substance: FUROSEMIDE
     Indication: PRODUCT USED FOR UNKNOWN INDICATION
     Dosage: UNK
     Route: 065
  9. NIFEDIPINE. [Concomitant]
     Active Substance: NIFEDIPINE
     Indication: PRODUCT USED FOR UNKNOWN INDICATION
     Dosage: 60 MILLIGRAM
     Route: 065
  10. JAKAFI [Interacting]
     Active Substance: RUXOLITINIB
     Indication: POLYCYTHAEMIA VERA
     Dosage: 15 MG, BID
     Route: 048
     Dates: start: 2015
  11. JAKAFI [Interacting]
     Active Substance: RUXOLITINIB
     Dosage: 20 MG, BID
     Route: 048
  12. VIBERZI [Concomitant]
     Active Substance: ELUXADOLINE
     Indication: PRODUCT USED FOR UNKNOWN INDICATION
     Dosage: UNK
     Route: 065
  13. VITAMIN B [Concomitant]
     Active Substance: VITAMIN B
     Indication: PRODUCT USED FOR UNKNOWN INDICATION
     Dosage: UNK
     Route: 065
  14. JAKAFI [Interacting]
     Active Substance: RUXOLITINIB
     Dosage: 15 MG, UNK
     Route: 048
  15. JAKAFI [Interacting]
     Active Substance: RUXOLITINIB
     Dosage: 20 MILLIGRAM, BID
     Route: 048
     Dates: start: 20191128
  16. JAKAFI [Interacting]
     Active Substance: RUXOLITINIB
     Dosage: 20 MG, BID
     Route: 048
  17. JAKAFI [Interacting]
     Active Substance: RUXOLITINIB
     Dosage: 20 MILLIGRAM, BID
     Route: 048
     Dates: start: 2019
  18. AMLODIPINE [Concomitant]
     Active Substance: AMLODIPINE BESYLATE
     Indication: PRODUCT USED FOR UNKNOWN INDICATION
     Dosage: 5 MG, BID
     Route: 065
  19. DOXYCYCLINE. [Concomitant]
     Active Substance: DOXYCYCLINE
     Indication: PRODUCT USED FOR UNKNOWN INDICATION
     Dosage: UNK
     Route: 065
  20. FAMOTIDINE. [Concomitant]
     Active Substance: FAMOTIDINE
     Indication: PRODUCT USED FOR UNKNOWN INDICATION
     Dosage: UNK
     Route: 065
  21. JAKAFI [Suspect]
     Active Substance: RUXOLITINIB
     Indication: MYELOFIBROSIS
     Dosage: 15 MILLIGRAM, BID
     Route: 048
     Dates: start: 20140414, end: 20180618
  22. JAKAFI [Interacting]
     Active Substance: RUXOLITINIB
     Dosage: 20 MG, BID
     Route: 048
     Dates: end: 2019
  23. WARFARIN [Suspect]
     Active Substance: WARFARIN
     Indication: PRODUCT USED FOR UNKNOWN INDICATION
     Dosage: 5 MG DAILY THEN 7.5 MG DAILY ON SAT AND SUNDAY
     Route: 065
  24. ASPIRIN                            /00002701/ [Concomitant]
     Active Substance: ASPIRIN
     Indication: PRODUCT USED FOR UNKNOWN INDICATION
     Dosage: 81 MG, QD
     Route: 065
  25. JAKAFI [Interacting]
     Active Substance: RUXOLITINIB
     Dosage: UNK
     Route: 048
  26. WARFARIN [Suspect]
     Active Substance: WARFARIN
     Dosage: UNK
     Route: 065
  27. WELLBUTRIN [Concomitant]
     Active Substance: BUPROPION HYDROCHLORIDE
     Indication: PRODUCT USED FOR UNKNOWN INDICATION
     Dosage: 300 MG, QD
     Route: 065
  28. FLUOXETINE [Concomitant]
     Active Substance: FLUOXETINE HYDROCHLORIDE
     Indication: PRODUCT USED FOR UNKNOWN INDICATION
     Route: 065
  29. APIXABAN [Concomitant]
     Active Substance: APIXABAN
     Indication: PRODUCT USED FOR UNKNOWN INDICATION
     Dosage: UNK
     Route: 065

REACTIONS (56)
  - Shunt occlusion [Recovered/Resolved]
  - Skin cancer [Unknown]
  - Pneumonia [Unknown]
  - Abdominal distension [Unknown]
  - Decreased appetite [Unknown]
  - Contusion [Unknown]
  - Dizziness [Unknown]
  - Shunt malfunction [Unknown]
  - Hypertension [Unknown]
  - Irritable bowel syndrome [Unknown]
  - Haematuria [Not Recovered/Not Resolved]
  - Feeding disorder [Recovered/Resolved]
  - Bleeding time prolonged [Unknown]
  - Depression [Unknown]
  - Drug ineffective [Unknown]
  - Pulmonary oedema [Unknown]
  - Granuloma annulare [Not Recovered/Not Resolved]
  - Malaise [Unknown]
  - Wheezing [Unknown]
  - Sepsis [Unknown]
  - Ascites [Not Recovered/Not Resolved]
  - Memory impairment [Unknown]
  - Skin laceration [Unknown]
  - Weight decreased [Unknown]
  - Pruritus [Recovered/Resolved]
  - Dry throat [Unknown]
  - Pyrexia [Unknown]
  - Thrombosis [Unknown]
  - Nephropathy toxic [Unknown]
  - Hepatic cirrhosis [Recovering/Resolving]
  - Fall [Unknown]
  - Acne [Unknown]
  - Apathy [Unknown]
  - Somnolence [Unknown]
  - Rash [Recovered/Resolved]
  - Wound haemorrhage [Recovering/Resolving]
  - Product dose omission [Unknown]
  - Erectile dysfunction [Unknown]
  - Liver disorder [Not Recovered/Not Resolved]
  - Gastroenteritis viral [Recovered/Resolved]
  - Fatigue [Unknown]
  - Gait disturbance [Recovered/Resolved]
  - Gingival disorder [Unknown]
  - Oropharyngeal pain [Recovering/Resolving]
  - Peripheral swelling [Unknown]
  - Balance disorder [Unknown]
  - Dyspnoea [Recovered/Resolved]
  - Inhibitory drug interaction [Unknown]
  - Pharyngeal erythema [Recovered/Resolved]
  - Arthropathy [Recovered/Resolved]
  - Osteoarthritis [Unknown]
  - International normalised ratio decreased [Recovered/Resolved]
  - Insomnia [Unknown]
  - Dental caries [Unknown]
  - Throat irritation [Unknown]
  - Immune system disorder [Unknown]

NARRATIVE: CASE EVENT DATE: 2016
